FAERS Safety Report 19935606 (Version 1)
Quarter: 2021Q4

REPORT INFORMATION
  Report Type: Spontaneous
  Country: US (occurrence: US)
  Receive Date: 20211008
  Receipt Date: 20211008
  Transmission Date: 20220303
  Serious: Yes (Life-Threatening)
  Sender: FDA-Public Use
  Company Number: US-SA-2021SA327836

PATIENT
  Age: 72 Year
  Sex: Female

DRUGS (18)
  1. DOCETAXEL [Suspect]
     Active Substance: DOCETAXEL
     Indication: Leiomyosarcoma metastatic
     Dosage: UNK
     Route: 042
     Dates: start: 20180314
  2. DOCETAXEL [Suspect]
     Active Substance: DOCETAXEL
     Dosage: 75 MG/M2
     Route: 042
     Dates: start: 20180321
  3. DOCETAXEL [Suspect]
     Active Substance: DOCETAXEL
     Dosage: 60 MG/M2
     Route: 042
  4. GEMCITABINE HYDROCHLORIDE [Suspect]
     Active Substance: GEMCITABINE HYDROCHLORIDE
     Indication: Leiomyosarcoma metastatic
     Dosage: 900 MG/M2
     Route: 042
     Dates: start: 20180314
  5. GEMCITABINE HYDROCHLORIDE [Suspect]
     Active Substance: GEMCITABINE HYDROCHLORIDE
     Dosage: 675 MG/M2
     Route: 042
  6. DILTIAZEM HYDROCHLORIDE [Suspect]
     Active Substance: DILTIAZEM HYDROCHLORIDE
     Indication: Atrial fibrillation
     Dosage: UNK
  7. LIDOCAINE\PRILOCAINE [Suspect]
     Active Substance: LIDOCAINE\PRILOCAINE
     Indication: Pain prophylaxis
     Dosage: UNK
  8. LORATADINE [Suspect]
     Active Substance: LORATADINE
     Indication: Pain prophylaxis
     Dosage: UNK
     Dates: start: 20180124
  9. LORAZEPAM [Suspect]
     Active Substance: LORAZEPAM
     Indication: Insomnia
     Dosage: UNK
     Dates: start: 2015
  10. OMEPRAZOLE [Suspect]
     Active Substance: OMEPRAZOLE
     Indication: Prophylaxis
     Dosage: UNK
  11. DEXAMETHASONE [Suspect]
     Active Substance: DEXAMETHASONE
     Indication: Myalgia
     Dosage: UNK
     Dates: start: 2013
  12. ZOVIRAX [Suspect]
     Active Substance: ACYCLOVIR
     Indication: Herpes simplex
     Dosage: UNK
     Dates: start: 1978
  13. DEXAMETHASONE [Suspect]
     Active Substance: DEXAMETHASONE
     Indication: Prophylaxis of nausea and vomiting
     Dosage: UNK
     Dates: start: 20180314
  14. ONDANSETRON [Suspect]
     Active Substance: ONDANSETRON
     Indication: Prophylaxis of nausea and vomiting
     Dosage: UNK
     Dates: start: 20180314
  15. ELIQUIS [Concomitant]
     Active Substance: APIXABAN
     Indication: Deep vein thrombosis
     Dosage: UNK
     Dates: start: 201706
  16. PROCHLORPERAZINE EDISYLATE [Concomitant]
     Active Substance: PROCHLORPERAZINE EDISYLATE
     Indication: Prophylaxis of nausea and vomiting
     Dosage: UNK
     Dates: start: 20180314
  17. PEGFILGRASTIM [Concomitant]
     Active Substance: PEGFILGRASTIM
     Dosage: UNK
  18. OLARATUMAB [Concomitant]
     Active Substance: OLARATUMAB
     Dosage: UNK

REACTIONS (1)
  - Platelet count decreased [Not Recovered/Not Resolved]
